FAERS Safety Report 9432328 (Version 1)
Quarter: 2013Q3

REPORT INFORMATION
  Report Type: Report from Study
  Country: JP (occurrence: JP)
  Receive Date: 20130731
  Receipt Date: 20130731
  Transmission Date: 20140515
  Serious: Yes (Death, Hospitalization)
  Sender: FDA-Public Use
  Company Number: JP-ROCHE-1254258

PATIENT
  Age: 80 Year
  Sex: Male
  Weight: 70 kg

DRUGS (7)
  1. MIRCERA [Suspect]
     Indication: NEPHROGENIC ANAEMIA
     Route: 058
     Dates: start: 20120403, end: 20130409
  2. BLOPRESS [Concomitant]
     Route: 048
  3. WARFARIN [Concomitant]
     Route: 048
  4. DIART [Concomitant]
     Route: 048
  5. FUROSEMIDE [Concomitant]
     Route: 048
  6. KALIMATE [Concomitant]
     Indication: NEPHROSCLEROSIS
     Route: 048
  7. ZYLORIC [Concomitant]
     Route: 048

REACTIONS (5)
  - Cellulitis [Recovered/Resolved]
  - Cardiac failure chronic [Recovered/Resolved]
  - Oesophageal carcinoma [Recovered/Resolved]
  - Pneumonia [Fatal]
  - Cardiac failure chronic [Fatal]
